FAERS Safety Report 5116922-2 (Version None)
Quarter: 2006Q3

REPORT INFORMATION
  Report Type: 
  Country: None (occurrence: None)
  Receive Date: 20060928
  Receipt Date: 20060915
  Transmission Date: 20061208
  Serious: Yes (Hospitalization)
  Sender: FDA-Public Use
  Company Number: BE-BOEHRINGER INGELHEIM PHARMACEUTICALS, INC.-2006-BL-00191BL

PATIENT
  Sex: Male
  Weight: 79.6 kg

DRUGS (4)
  1. TPV/RTV CO-ADMIN [Suspect]
     Indication: HIV INFECTION
     Dosage: 1000 MG / 400 MG
     Route: 048
     Dates: start: 20060911, end: 20060914
  2. MK-0518/PLACEBO [Concomitant]
     Indication: HIV INFECTION
     Route: 048
     Dates: start: 20060905, end: 20060914
  3. EMTRIVA [Concomitant]
     Indication: HIV INFECTION
     Route: 048
     Dates: start: 20060908, end: 20060914
  4. VIREAD [Concomitant]
     Indication: HIV INFECTION
     Route: 048
     Dates: start: 20060911, end: 20060914

REACTIONS (4)
  - ABDOMINAL DISCOMFORT [None]
  - GASTRIC HAEMORRHAGE [None]
  - GASTRIC ULCER [None]
  - GASTRIC ULCER HAEMORRHAGE [None]
